FAERS Safety Report 12105256 (Version 1)
Quarter: 2016Q1

REPORT INFORMATION
  Report Type: Spontaneous
  Country: FR (occurrence: FR)
  Receive Date: 20160223
  Receipt Date: 20160223
  Transmission Date: 20160526
  Serious: Yes (Death, Hospitalization, Other)
  Sender: FDA-Public Use
  Company Number: FR-GLAXOSMITHKLINE-B0993130A

PATIENT
  Age: 65 Year
  Sex: Female

DRUGS (10)
  1. BACTRIM [Suspect]
     Active Substance: SULFAMETHOXAZOLE\TRIMETHOPRIM
     Indication: PRODUCT USED FOR UNKNOWN INDICATION
  2. AUGMENTIN [Suspect]
     Active Substance: AMOXICILLIN\CLAVULANATE POTASSIUM
     Indication: FEBRILE BONE MARROW APLASIA
     Dosage: UNK UNK, U
     Route: 042
     Dates: start: 20140303, end: 20140304
  3. OFLOCET [Suspect]
     Active Substance: OFLOXACIN
     Indication: FEBRILE BONE MARROW APLASIA
     Dosage: UNK UNK, U
     Route: 042
     Dates: start: 20140303, end: 20140304
  4. CLAVENTIN [Suspect]
     Active Substance: CLAVULANATE POTASSIUM\TICARCILLIN DISODIUM
     Indication: PRODUCT USED FOR UNKNOWN INDICATION
     Dosage: UNK
     Dates: start: 20140508
  5. TAZOCILLINE [Suspect]
     Active Substance: PIPERACILLIN SODIUM\TAZOBACTAM SODIUM
     Indication: FEBRILE BONE MARROW APLASIA
     Dosage: UNK, U
     Route: 042
     Dates: start: 20140305, end: 20140308
  6. RADIOTHERAPY [Concomitant]
     Active Substance: RADIATION THERAPY
     Indication: BREAST CANCER
  7. AMOXICILLIN. [Suspect]
     Active Substance: AMOXICILLIN
     Indication: FEBRILE BONE MARROW APLASIA
     Dosage: UNK UNK, U
     Route: 065
     Dates: start: 201403, end: 20140313
  8. DOCETAXEL. [Suspect]
     Active Substance: DOCETAXEL
     Indication: BREAST CANCER
     Dosage: UNK UNK, UNK
     Route: 042
     Dates: start: 20140227
  9. GENTAMICINE [Suspect]
     Active Substance: GENTAMICIN
     Indication: FEBRILE BONE MARROW APLASIA
     Dosage: UNK UNK, U
     Route: 042
     Dates: start: 20140305, end: 20140308
  10. ENDOXAN [Suspect]
     Active Substance: CYCLOPHOSPHAMIDE
     Indication: BREAST CANCER
     Route: 042
     Dates: start: 20140227

REACTIONS (2)
  - Multiple organ dysfunction syndrome [Recovering/Resolving]
  - Toxic epidermal necrolysis [Fatal]

NARRATIVE: CASE EVENT DATE: 20140306
